FAERS Safety Report 19897544 (Version 1)
Quarter: 2021Q3

REPORT INFORMATION
  Report Type: Spontaneous
  Country: US (occurrence: US)
  Receive Date: 20210929
  Receipt Date: 20210929
  Transmission Date: 20211014
  Serious: Yes (Hospitalization, Other)
  Sender: FDA-Public Use
  Company Number: US-ZHEJIANG JUTAI PHARMACEUTICALS-000007

PATIENT
  Sex: Male

DRUGS (1)
  1. BUPROPION. [Suspect]
     Active Substance: BUPROPION
     Indication: DEPRESSION
     Dosage: INJECTED 10 TABLETS OF BUPROPION
     Route: 042

REACTIONS (2)
  - Product use issue [Unknown]
  - Tachycardia [Unknown]
